FAERS Safety Report 16397287 (Version 2)
Quarter: 2019Q3

REPORT INFORMATION
  Report Type: Spontaneous
  Country: US (occurrence: US)
  Receive Date: 20190606
  Receipt Date: 20190815
  Transmission Date: 20191004
  Serious: Yes (Other)
  Sender: FDA-Public Use
  Company Number: US-GW PHARMA-201905USGW1502

PATIENT

DRUGS (19)
  1. IBUPROFEN. [Concomitant]
     Active Substance: IBUPROFEN
     Indication: PAIN
     Dosage: 600 MILLIGRAM, Q6H, AS NEEDED
     Route: 065
  2. TOPAMAX [Concomitant]
     Active Substance: TOPIRAMATE
     Indication: SEIZURE
     Dosage: 300 MILLIGRAM, BID
     Route: 048
     Dates: start: 201808
  3. RISPERIDONE. [Concomitant]
     Active Substance: RISPERIDONE
     Indication: AGITATION
     Dosage: 1 MILLIGRAM, BID
     Route: 048
  4. LEVOCARNITINE. [Concomitant]
     Active Substance: LEVOCARNITINE
     Indication: PRODUCT USED FOR UNKNOWN INDICATION
     Dosage: 990 MILLIGRAM, BID
     Route: 048
  5. POLYETHYLENE GLYCOL 3350. [Concomitant]
     Active Substance: POLYETHYLENE GLYCOL 3350
     Indication: CONSTIPATION
     Dosage: 17 GRAM, QD, AS NEEDED (1 PACKET)
     Route: 048
  6. DOCUSATE SODIUM. [Concomitant]
     Active Substance: DOCUSATE SODIUM
     Indication: PRODUCT USED FOR UNKNOWN INDICATION
     Dosage: 100 MILLIGRAM, BID
     Route: 048
  7. LACTULOSE. [Concomitant]
     Active Substance: LACTULOSE
     Indication: CONSTIPATION
     Dosage: 45 MILLILITER, TID, AS NEEDED
     Route: 048
  8. LORAZEPAM. [Concomitant]
     Active Substance: LORAZEPAM
     Indication: SEIZURE CLUSTER
     Dosage: 1 MILLIGRAM, PRN
     Route: 048
  9. WARFARIN [Concomitant]
     Active Substance: WARFARIN
     Indication: PRODUCT USED FOR UNKNOWN INDICATION
     Dosage: 10 MILLIGRAM, QD IN THE EVENING
     Route: 048
  10. VALIUM [Concomitant]
     Active Substance: DIAZEPAM
     Indication: SEIZURE
     Dosage: 20 MILLIGRAM, QD (5, 5, 10 MG IN AM/MIDDAY/PM)
     Route: 065
  11. PHENOBARBITAL. [Concomitant]
     Active Substance: PHENOBARBITAL
     Indication: SEIZURE
     Dosage: 291.6 MILLIGRAM, QD (97.2 MG IN AM AND 194.4 MG AT BEDTIME)
     Route: 065
     Dates: start: 201808
  12. EPIDIOLEX [Suspect]
     Active Substance: CANNABIDIOL
     Indication: FOCAL DYSCOGNITIVE SEIZURES
  13. LORAZEPAM. [Concomitant]
     Active Substance: LORAZEPAM
     Indication: SEIZURE
  14. EPIDIOLEX [Suspect]
     Active Substance: CANNABIDIOL
     Indication: EPILEPSY
     Dosage: 10 MG/KG, 460 MILLIGRAM, BID
     Route: 048
     Dates: start: 201904
  15. DIAZEPAM. [Concomitant]
     Active Substance: DIAZEPAM
     Indication: SEIZURE
     Dosage: 12.5 MILLIGRAM, QD (12.5 MG -15 MG - 17.5 MG - 20 MG)
     Route: 054
     Dates: start: 20181121
  16. EPIDIOLEX [Suspect]
     Active Substance: CANNABIDIOL
     Indication: PARTIAL SEIZURES
     Dosage: 5 MG/KG, 230 MILLIGRAM, BID
     Route: 048
     Dates: start: 20190328, end: 201904
  17. VIMPAT [Concomitant]
     Active Substance: LACOSAMIDE
     Indication: SEIZURE
     Dosage: 500 MILLIGRAM, QD (200MG IN AM AND 300MG AT NIGHT)
     Route: 065
     Dates: start: 201808
  18. KEPPRA [Concomitant]
     Active Substance: LEVETIRACETAM
     Indication: SEIZURE
     Dosage: 2000 MILLIGRAM, BID
     Route: 065
     Dates: start: 201808
  19. FYCOMPA [Concomitant]
     Active Substance: PERAMPANEL
     Indication: PRODUCT USED FOR UNKNOWN INDICATION
     Dosage: UNK
     Route: 065
     Dates: start: 201808, end: 201904

REACTIONS (8)
  - Ocular hyperaemia [Unknown]
  - Fall [Unknown]
  - Productive cough [Unknown]
  - Foot fracture [Unknown]
  - Somnolence [Unknown]
  - Fatigue [Unknown]
  - Seizure [Unknown]
  - Weight decreased [Unknown]

NARRATIVE: CASE EVENT DATE: 2019
